FAERS Safety Report 7380734-X (Version None)
Quarter: 2011Q1

REPORT INFORMATION
  Report Type: 
  Country: None (occurrence: None)
  Receive Date: 20110329
  Receipt Date: 20110318
  Transmission Date: 20110831
  Serious: Yes (Hospitalization)
  Sender: FDA-Public Use
  Company Number: A0747604A

PATIENT
  Age: 66 Year
  Sex: Male
  Weight: 97.3 kg

DRUGS (3)
  1. ROSIGLITAZONE MALEATE [Suspect]
     Indication: TYPE 2 DIABETES MELLITUS
     Route: 048
     Dates: start: 20010116
  2. DIABETA [Concomitant]
     Dates: start: 20010101, end: 20080101
  3. AVANDIA [Suspect]
     Indication: TYPE 2 DIABETES MELLITUS
     Dosage: 4MG PER DAY
     Route: 048
     Dates: start: 20010101, end: 20070101

REACTIONS (22)
  - PAIN [None]
  - SINUS ARREST [None]
  - DIABETIC NEPHROPATHY [None]
  - CORONARY ARTERY DISEASE [None]
  - ANXIETY [None]
  - ARRHYTHMIA [None]
  - HYPERHIDROSIS [None]
  - MYOCARDIAL INFARCTION [None]
  - CARDIAC HYPERTROPHY [None]
  - CARDIOMYOPATHY [None]
  - RENAL FAILURE ACUTE [None]
  - CARDIAC FAILURE CONGESTIVE [None]
  - OEDEMA [None]
  - RENAL DISORDER [None]
  - ANGER [None]
  - ANGINA PECTORIS [None]
  - DIZZINESS [None]
  - LIVER DISORDER [None]
  - CHEST PAIN [None]
  - LOSS OF CONSCIOUSNESS [None]
  - NODAL RHYTHM [None]
  - DEPRESSION [None]
